FAERS Safety Report 8083379-1 (Version None)
Quarter: 2012Q1

REPORT INFORMATION
  Report Type: 
  Country: None (occurrence: None)
  Receive Date: 20120127
  Receipt Date: 20110302
  Transmission Date: 20120608
  Serious: No
  Sender: FDA-Public Use
  Company Number: US-ABBOTT-11P-163-0702830-00

PATIENT
  Sex: Female
  Weight: 83.082 kg

DRUGS (3)
  1. HUMIRA [Suspect]
     Indication: PSORIATIC ARTHROPATHY
     Route: 058
     Dates: start: 20101101, end: 20110201
  2. LISINOPRIL [Concomitant]
     Indication: HYPERTENSION
  3. METFFORMIN HYDROCHLORIDE [Concomitant]
     Indication: DIABETES MELLITUS

REACTIONS (10)
  - FATIGUE [None]
  - ASCITES [None]
  - COUGH [None]
  - WEIGHT DECREASED [None]
  - DYSPEPSIA [None]
  - ABDOMINAL DISTENSION [None]
  - DECREASED APPETITE [None]
  - BREAST PAIN [None]
  - DYSGEUSIA [None]
  - NASOPHARYNGITIS [None]
